FAERS Safety Report 14858310 (Version 4)
Quarter: 2018Q3

REPORT INFORMATION
  Report Type: Spontaneous
  Country: US (occurrence: US)
  Receive Date: 20180508
  Receipt Date: 20180907
  Transmission Date: 20181010
  Serious: No
  Sender: FDA-Public Use
  Company Number: US-JNJFOC-20180417154

PATIENT
  Sex: Female
  Weight: 90.72 kg

DRUGS (43)
  1. DURAGESIC [Suspect]
     Active Substance: FENTANYL
     Indication: CROHN^S DISEASE
     Route: 062
  2. DURAGESIC [Suspect]
     Active Substance: FENTANYL
     Indication: BACK PAIN
     Route: 062
     Dates: start: 2005, end: 2010
  3. DURAGESIC [Suspect]
     Active Substance: FENTANYL
     Indication: NEUROPATHY PERIPHERAL
     Route: 062
     Dates: start: 2005, end: 2010
  4. DURAGESIC [Suspect]
     Active Substance: FENTANYL
     Indication: BACK PAIN
     Route: 062
  5. DURAGESIC [Suspect]
     Active Substance: FENTANYL
     Indication: MULTIPLE SCLEROSIS
     Route: 062
  6. DURAGESIC [Suspect]
     Active Substance: FENTANYL
     Indication: NEUROPATHY PERIPHERAL
     Route: 062
  7. DURAGESIC [Suspect]
     Active Substance: FENTANYL
     Indication: RHEUMATOID ARTHRITIS
     Route: 062
  8. DURAGESIC [Suspect]
     Active Substance: FENTANYL
     Indication: CROHN^S DISEASE
     Route: 062
  9. DURAGESIC [Suspect]
     Active Substance: FENTANYL
     Indication: BACK PAIN
     Route: 062
  10. DURAGESIC [Suspect]
     Active Substance: FENTANYL
     Indication: RHEUMATOID ARTHRITIS
     Route: 062
  11. DURAGESIC [Suspect]
     Active Substance: FENTANYL
     Indication: MULTIPLE SCLEROSIS
     Route: 062
  12. DURAGESIC [Suspect]
     Active Substance: FENTANYL
     Indication: NEUROPATHY PERIPHERAL
     Route: 062
     Dates: start: 2005, end: 2010
  13. DURAGESIC [Suspect]
     Active Substance: FENTANYL
     Indication: RHEUMATOID ARTHRITIS
     Route: 062
     Dates: start: 2005, end: 2010
  14. OXYCODONE [Concomitant]
     Active Substance: OXYCODONE
     Route: 065
  15. DURAGESIC [Suspect]
     Active Substance: FENTANYL
     Indication: NEUROPATHY PERIPHERAL
     Route: 062
  16. DURAGESIC [Suspect]
     Active Substance: FENTANYL
     Indication: CROHN^S DISEASE
     Route: 062
  17. DURAGESIC [Suspect]
     Active Substance: FENTANYL
     Indication: BACK PAIN
     Route: 062
  18. DURAGESIC [Suspect]
     Active Substance: FENTANYL
     Indication: NERVE INJURY
     Route: 062
  19. DURAGESIC [Suspect]
     Active Substance: FENTANYL
     Indication: CROHN^S DISEASE
     Route: 062
     Dates: start: 2005, end: 2010
  20. DURAGESIC [Suspect]
     Active Substance: FENTANYL
     Indication: NERVE INJURY
     Route: 062
     Dates: start: 2005, end: 2010
  21. DURAGESIC [Suspect]
     Active Substance: FENTANYL
     Indication: NEUROPATHY PERIPHERAL
     Route: 062
  22. DURAGESIC [Suspect]
     Active Substance: FENTANYL
     Indication: CROHN^S DISEASE
     Route: 062
  23. DURAGESIC [Suspect]
     Active Substance: FENTANYL
     Indication: CROHN^S DISEASE
     Route: 062
  24. DURAGESIC [Suspect]
     Active Substance: FENTANYL
     Indication: NERVE INJURY
     Route: 062
  25. DURAGESIC [Suspect]
     Active Substance: FENTANYL
     Indication: BACK PAIN
     Route: 062
  26. DURAGESIC [Suspect]
     Active Substance: FENTANYL
     Indication: RHEUMATOID ARTHRITIS
     Route: 062
     Dates: start: 2005, end: 2010
  27. DURAGESIC [Suspect]
     Active Substance: FENTANYL
     Indication: BACK PAIN
     Route: 062
     Dates: start: 2005, end: 2010
  28. DURAGESIC [Suspect]
     Active Substance: FENTANYL
     Indication: RHEUMATOID ARTHRITIS
     Route: 062
  29. DURAGESIC [Suspect]
     Active Substance: FENTANYL
     Indication: NERVE INJURY
     Route: 062
  30. DURAGESIC [Suspect]
     Active Substance: FENTANYL
     Indication: MULTIPLE SCLEROSIS
     Route: 062
  31. DURAGESIC [Suspect]
     Active Substance: FENTANYL
     Indication: MULTIPLE SCLEROSIS
     Route: 062
     Dates: start: 2005, end: 2010
  32. DURAGESIC [Suspect]
     Active Substance: FENTANYL
     Indication: MULTIPLE SCLEROSIS
     Route: 062
     Dates: start: 2005, end: 2010
  33. DURAGESIC [Suspect]
     Active Substance: FENTANYL
     Indication: RHEUMATOID ARTHRITIS
     Route: 062
  34. DURAGESIC [Suspect]
     Active Substance: FENTANYL
     Indication: RHEUMATOID ARTHRITIS
     Route: 062
  35. DURAGESIC [Suspect]
     Active Substance: FENTANYL
     Indication: NERVE INJURY
     Route: 062
     Dates: start: 2005, end: 2010
  36. DURAGESIC [Suspect]
     Active Substance: FENTANYL
     Indication: NERVE INJURY
     Route: 062
  37. DURAGESIC [Suspect]
     Active Substance: FENTANYL
     Indication: NEUROPATHY PERIPHERAL
     Route: 062
  38. DURAGESIC [Suspect]
     Active Substance: FENTANYL
     Indication: MULTIPLE SCLEROSIS
     Route: 062
  39. DURAGESIC [Suspect]
     Active Substance: FENTANYL
     Indication: NEUROPATHY PERIPHERAL
     Route: 062
  40. DURAGESIC [Suspect]
     Active Substance: FENTANYL
     Indication: BACK PAIN
     Route: 062
  41. DURAGESIC [Suspect]
     Active Substance: FENTANYL
     Indication: NERVE INJURY
     Route: 062
  42. DURAGESIC [Suspect]
     Active Substance: FENTANYL
     Indication: CROHN^S DISEASE
     Route: 062
     Dates: start: 2005, end: 2010
  43. DURAGESIC [Suspect]
     Active Substance: FENTANYL
     Indication: MULTIPLE SCLEROSIS
     Route: 062

REACTIONS (8)
  - Anxiety [Not Recovered/Not Resolved]
  - Inappropriate schedule of drug administration [Unknown]
  - Drug ineffective [Unknown]
  - Wrong technique in product usage process [Unknown]
  - Expired product administered [Unknown]
  - Adverse event [Unknown]
  - Product adhesion issue [Unknown]
  - Weight increased [Not Recovered/Not Resolved]
